FAERS Safety Report 8313102-4 (Version None)
Quarter: 2012Q2

REPORT INFORMATION
  Report Type: 
  Country: None (occurrence: None)
  Receive Date: 20120426
  Receipt Date: 20120420
  Transmission Date: 20120825
  Serious: Yes (Hospitalization, Other)
  Sender: FDA-Public Use
  Company Number: TW-PFIZER INC-2012097781

PATIENT
  Age: 77 Year
  Sex: Female
  Weight: 70 kg

DRUGS (8)
  1. UNASYN [Suspect]
     Indication: SEPSIS
     Dosage: 1.5 G, 4X/DAY (Q6H)
     Route: 042
     Dates: start: 20120317, end: 20120322
  2. UNASYN [Suspect]
     Dosage: 3.0 G, 4X/DAY (Q6H)
     Route: 042
     Dates: start: 20120330, end: 20120403
  3. SENNA-MINT WAF [Concomitant]
     Indication: CONSTIPATION
     Dosage: 20 MG, 1X/DAY (HS)
     Route: 048
     Dates: start: 20120314, end: 20120415
  4. CEFEPIME [Suspect]
     Indication: SEPSIS
     Dosage: 1000 MG, 3X/DAY (Q8H)
     Route: 042
     Dates: start: 20120323, end: 20120330
  5. PHENYTOIN SODIUM CAP [Suspect]
     Indication: CONVULSION
     Dosage: 300 MG, 3X/DAY
     Route: 042
     Dates: start: 20120317, end: 20120403
  6. DILANTIN [Suspect]
     Indication: CONVULSION
     Dosage: 100 MG, 3X/DAY
     Route: 048
     Dates: start: 20120314, end: 20120316
  7. TAMSULOSIN [Concomitant]
     Indication: DYSURIA
     Dosage: 0.2 MG, 1X/DAY (HS)
     Route: 048
     Dates: start: 20120401, end: 20120403
  8. BETHANECHOL [Concomitant]
     Indication: DYSURIA
     Dosage: 25 MG, 3X/DAY
     Route: 048
     Dates: start: 20120331, end: 20120403

REACTIONS (2)
  - PANCYTOPENIA [None]
  - NEUTROPENIA [None]
